FAERS Safety Report 4300843-9 (Version None)
Quarter: 2004Q1

REPORT INFORMATION
  Report Type: 
  Country: None (occurrence: None)
  Receive Date: 20040220
  Receipt Date: 20040212
  Transmission Date: 20041129
  Serious: Yes (Congenital Anomaly)
  Sender: FDA-Public Use
  Company Number: WAES 0402KOR00008B1

PATIENT

DRUGS (1)
  1. PROSCAR [Suspect]
     Indication: ALOPECIA

REACTIONS (5)
  - ABORTION [None]
  - CHROMOSOMAL DELETION [None]
  - DRUG EXPOSURE DURING PREGNANCY [None]
  - PREGNANCY [None]
  - TRANSMISSION OF DRUG VIA SEMEN [None]
